FAERS Safety Report 16376985 (Version 3)
Quarter: 2020Q4

REPORT INFORMATION
  Report Type: Spontaneous
  Country: US (occurrence: US)
  Receive Date: 20190531
  Receipt Date: 20201014
  Transmission Date: 20210113
  Serious: No
  Sender: FDA-Public Use
  Company Number: US-PFIZER INC-2019226554

PATIENT
  Age: 57 Year
  Sex: Female
  Weight: 96.62 kg

DRUGS (1)
  1. LYRICA [Suspect]
     Active Substance: PREGABALIN
     Indication: FIBROMYALGIA
     Dosage: 75 MG, UNK

REACTIONS (2)
  - Intentional product use issue [Unknown]
  - Condition aggravated [Unknown]
